FAERS Safety Report 9739318 (Version 2)
Quarter: 2013Q4

REPORT INFORMATION
  Report Type: Spontaneous
  Country: US (occurrence: US)
  Receive Date: 20131209
  Receipt Date: 20131210
  Transmission Date: 20140711
  Serious: Yes (Hospitalization)
  Sender: FDA-Public Use
  Company Number: US-SA-2013SA126935

PATIENT
  Age: 70 Year
  Sex: Male

DRUGS (3)
  1. LANTUS SOLOSTAR [Suspect]
     Dosage: DOSE:20 UNIT(S)
     Route: 051
     Dates: start: 201310
  2. NOVOLOG [Suspect]
     Route: 065
  3. SOLOSTAR [Concomitant]

REACTIONS (2)
  - Loss of consciousness [Unknown]
  - Blood glucose increased [Unknown]
